FAERS Safety Report 6782927-9 (Version None)
Quarter: 2010Q2

REPORT INFORMATION
  Report Type: 
  Country: None (occurrence: None)
  Receive Date: 20100616
  Receipt Date: 20100610
  Transmission Date: 20101027
  Serious: Yes (Other)
  Sender: FDA-Public Use
  Company Number: W201018583

PATIENT
  Age: 19 Year
  Sex: Female
  Weight: 89.3586 kg

DRUGS (4)
  1. CIPROFLOXACIN [Suspect]
     Indication: NAUSEA
     Dates: start: 20100425, end: 20100501
  2. CIPROFLOXACIN [Suspect]
     Indication: URINARY TRACT INFECTION
     Dates: start: 20100425, end: 20100501
  3. CONCERTA [Concomitant]
  4. CELEXA [Concomitant]

REACTIONS (2)
  - INJECTION SITE INFECTION [None]
  - STAPHYLOCOCCAL INFECTION [None]
